FAERS Safety Report 10690385 (Version 1)
Quarter: 2015Q1

REPORT INFORMATION
  Report Type: Spontaneous
  Country: US (occurrence: None)
  Receive Date: 20150102
  Receipt Date: 20150102
  Transmission Date: 20150720
  Serious: Yes (Hospitalization, Disabling)
  Sender: FDA-Public Use
  Company Number: None

PATIENT
  Age: 31 Year
  Sex: Female
  Weight: 72.58 kg

DRUGS (1)
  1. TOPAMAX [Suspect]
     Active Substance: TOPIRAMATE
     Indication: MIGRAINE
     Dosage: 1 PILL 2X A DAY TWICE DAILY TAKEN BY MOUTH
     Route: 048
     Dates: start: 20140802, end: 20141230

REACTIONS (4)
  - Seizure [None]
  - Suicidal ideation [None]
  - Hypothermia [None]
  - Liver injury [None]

NARRATIVE: CASE EVENT DATE: 20141225
